FAERS Safety Report 15539494 (Version 1)
Quarter: 2018Q4

REPORT INFORMATION
  Report Type: Spontaneous
  Country: FR (occurrence: FR)
  Receive Date: 20181023
  Receipt Date: 20181023
  Transmission Date: 20190205
  Serious: Yes (Death, Other)
  Sender: FDA-Public Use
  Company Number: FR-TEVA-2018-FR-967592

PATIENT
  Age: 60 Year
  Sex: Female
  Weight: 98 kg

DRUGS (7)
  1. HOLOXAN [Interacting]
     Active Substance: IFOSFAMIDE
     Indication: SARCOMA
     Dosage: 5 GRAMMES
     Route: 042
     Dates: start: 20180806, end: 20180807
  2. MESNA EG [Concomitant]
     Active Substance: MESNA
     Route: 065
  3. DOXORUBICINE [Suspect]
     Active Substance: DOXORUBICIN
     Indication: SARCOMA
     Dosage: 40 MILLIGRAM DAILY; 40 MILLIGRAMMES
     Route: 042
     Dates: start: 20180806, end: 20180807
  4. METHYLPREDNISOLONE. [Concomitant]
     Active Substance: METHYLPREDNISOLONE
     Route: 065
  5. CHLORURE DE SODIUM [Concomitant]
     Active Substance: SODIUM CHLORIDE
     Route: 065
  6. ONDANSETRON [Concomitant]
     Active Substance: ONDANSETRON
     Route: 065
  7. EMEND [Interacting]
     Active Substance: APREPITANT
     Dosage: 125 MILLIGRAM DAILY; 125 MILLIGRAMMES
     Route: 048
     Dates: start: 20180806, end: 20180807

REACTIONS (2)
  - Encephalopathy [Fatal]
  - Drug interaction [Unknown]

NARRATIVE: CASE EVENT DATE: 20180807
